FAERS Safety Report 10608891 (Version 1)
Quarter: 2014Q4

REPORT INFORMATION
  Report Type: Report from Study
  Country: US (occurrence: US)
  Receive Date: 20141125
  Receipt Date: 20141125
  Transmission Date: 20150529
  Serious: Yes (Hospitalization)
  Sender: FDA-Public Use
  Company Number: US-TAKEDA-2014TUS012201

PATIENT
  Sex: Male
  Weight: 91.61 kg

DRUGS (4)
  1. ULORIC [Suspect]
     Active Substance: FEBUXOSTAT
     Indication: GOUT
     Dosage: 40 MG, QD
     Route: 048
     Dates: start: 201407, end: 201408
  2. ULORIC [Suspect]
     Active Substance: FEBUXOSTAT
     Dosage: ONE 40 MG TABLET AND 1/2 OF A 40 MG TABLET
     Route: 048
     Dates: start: 201408, end: 20140916
  3. BUNCH OF MEDS [Concomitant]
  4. SIMVASTATIN. [Concomitant]
     Active Substance: SIMVASTATIN

REACTIONS (2)
  - Gout [Recovered/Resolved]
  - Vasculitis [Recovered/Resolved]
